FAERS Safety Report 8018254-1 (Version None)
Quarter: 2012Q1

REPORT INFORMATION
  Report Type: 
  Country: None (occurrence: None)
  Receive Date: 20120103
  Receipt Date: 20111227
  Transmission Date: 20120608
  Serious: Yes (Other)
  Sender: FDA-Public Use
  Company Number: GB-B.I. PHARMACEUTICALS,INC./RIDGEFIELD-2011-EU-01326GD

PATIENT

DRUGS (3)
  1. DABIGATRAN [Suspect]
     Indication: THROMBOSIS PROPHYLAXIS
     Dosage: 75 MG (REDUCED DOSE TO PATIENTS WHO WERE OVER 75 YEARS OLD, HAD MODERATE RENAL IMPAIRMENT, OR WERE T
     Route: 048
  2. ANTIBIOTICS [Concomitant]
     Indication: PROPHYLAXIS
     Dosage: 3 DOSES
     Route: 042
  3. DABIGATRAN [Suspect]
     Dosage: 150 MG (REDUCED DOSE TO PATIENTS WHO WERE OVER 75 YEARS OLD, HAD MODERATE RENAL IMPAIRMENT, OR WERE
     Route: 048

REACTIONS (2)
  - WOUND COMPLICATION [None]
  - WOUND SECRETION [None]
